FAERS Safety Report 5725035-8 (Version None)
Quarter: 2008Q2

REPORT INFORMATION
  Report Type: 
  Country: None (occurrence: None)
  Receive Date: 20080429
  Receipt Date: 20080414
  Transmission Date: 20081010
  Serious: Yes (Other)
  Sender: FDA-Public Use
  Company Number: 2008S1006579

PATIENT
  Age: 68 Year
  Sex: Female

DRUGS (2)
  1. DURAPENTAL (PENTOXIFYLLINE) [Suspect]
     Indication: SUDDEN HEARING LOSS
     Dosage: 400 MG; 3 TIMES A DAY; ORAL
     Route: 048
     Dates: start: 20071225, end: 20080108
  2. PENTOXIFYLLINE [Concomitant]

REACTIONS (3)
  - DEAFNESS [None]
  - DIZZINESS [None]
  - EAR DISCOMFORT [None]
